FAERS Safety Report 5576208-9 (Version None)
Quarter: 2007Q4

REPORT INFORMATION
  Report Type: 
  Country: None (occurrence: None)
  Receive Date: 20071228
  Receipt Date: 20071221
  Transmission Date: 20080405
  Serious: Yes (Hospitalization)
  Sender: FDA-Public Use
  Company Number: ID-JNJFOC-20071205480

PATIENT
  Sex: Female
  Weight: 57 kg

DRUGS (1)
  1. RISPERIDONE LAI [Suspect]
     Indication: BIPOLAR I DISORDER
     Route: 030

REACTIONS (3)
  - AGGRESSION [None]
  - DELUSION [None]
  - IRRITABILITY [None]
